FAERS Safety Report 8136346-3 (Version None)
Quarter: 2012Q1

REPORT INFORMATION
  Report Type: 
  Country: None (occurrence: None)
  Receive Date: 20120214
  Receipt Date: 20120213
  Transmission Date: 20120608
  Serious: Yes (Hospitalization)
  Sender: FDA-Public Use
  Company Number: US-BRISTOL-MYERS SQUIBB COMPANY-15957756

PATIENT
  Age: 83 Year
  Sex: Female

DRUGS (5)
  1. BLINDED: SAXAGLIPTIN [Suspect]
     Indication: TYPE 2 DIABETES MELLITUS
  2. COUMADIN [Suspect]
  3. ASPIRIN [Suspect]
  4. PLACEBO [Suspect]
     Indication: TYPE 2 DIABETES MELLITUS
  5. PLAVIX [Suspect]

REACTIONS (3)
  - VASODILATATION [None]
  - RECTAL HAEMORRHAGE [None]
  - LOWER GASTROINTESTINAL HAEMORRHAGE [None]
